FAERS Safety Report 6238586-7 (Version None)
Quarter: 2009Q2

REPORT INFORMATION
  Report Type: 
  Country: None (occurrence: None)
  Receive Date: 20090622
  Receipt Date: 20090612
  Transmission Date: 20091009
  Serious: Yes (Hospitalization)
  Sender: FDA-Public Use
  Company Number: JP-NOVOPROD-288308

PATIENT
  Age: 11 Year
  Sex: Female
  Weight: 30 kg

DRUGS (2)
  1. NORDITROPIN [Suspect]
     Indication: TURNER'S SYNDROME
     Dosage: 1.8 MG, QD
     Route: 058
     Dates: start: 20060517, end: 20081208
  2. CLARITHROMYCIN [Concomitant]
     Indication: INFLUENZA
     Dosage: UNKNOWN
     Dates: start: 20081209

REACTIONS (3)
  - APLASTIC ANAEMIA [None]
  - INFLUENZA [None]
  - LIVER DISORDER [None]
